FAERS Safety Report 13650311 (Version 2)
Quarter: 2017Q2

REPORT INFORMATION
  Report Type: Spontaneous
  Country: GB (occurrence: GB)
  Receive Date: 20170614
  Receipt Date: 20170615
  Transmission Date: 20170830
  Serious: Yes (Hospitalization)
  Sender: FDA-Public Use
  Company Number: PHFR2017GB004393

PATIENT
  Age: 32 Year
  Sex: Female

DRUGS (2)
  1. CICLOSPORIN [Suspect]
     Active Substance: CYCLOSPORINE
     Indication: PSORIASIS
     Dosage: 75 MG, BID
     Route: 065
     Dates: start: 20111101
  2. ENOXAPARIN [Concomitant]
     Active Substance: ENOXAPARIN
     Indication: PRODUCT USED FOR UNKNOWN INDICATION
     Dosage: 1 DF, UNK
     Route: 058
     Dates: start: 20140826

REACTIONS (8)
  - Peripheral swelling [Unknown]
  - Pain in extremity [Unknown]
  - Limb injury [Unknown]
  - Contusion [Unknown]
  - Pruritus [Unknown]
  - Normal newborn [Unknown]
  - Maternal exposure before pregnancy [Unknown]
  - Vaginal haemorrhage [Recovered/Resolved]

NARRATIVE: CASE EVENT DATE: 20140714
